FAERS Safety Report 7816759-7 (Version None)
Quarter: 2011Q4

REPORT INFORMATION
  Report Type: 
  Country: None (occurrence: None)
  Receive Date: 20111017
  Receipt Date: 20111006
  Transmission Date: 20120403
  Serious: Yes (Hospitalization, Other)
  Sender: FDA-Public Use
  Company Number: US-ACTELION-A-NJ2011-44253

PATIENT

DRUGS (2)
  1. REVATIO [Concomitant]
  2. TRACLEER [Suspect]
     Indication: PULMONARY ARTERIAL HYPERTENSION
     Dosage: UNK
     Route: 048
     Dates: start: 20080519

REACTIONS (13)
  - ASTHMA [None]
  - WHEEZING [None]
  - CRITICAL ILLNESS POLYNEUROPATHY [None]
  - GAIT DISTURBANCE [None]
  - AMNESIA [None]
  - OVARIAN MASS [None]
  - MUSCLE DISORDER [None]
  - CONFUSIONAL STATE [None]
  - DYSGRAPHIA [None]
  - PNEUMONIA [None]
  - FALL [None]
  - CONCUSSION [None]
  - CONDITION AGGRAVATED [None]
